FAERS Safety Report 5202786-5 (Version None)
Quarter: 2007Q1

REPORT INFORMATION
  Report Type: 
  Country: None (occurrence: None)
  Receive Date: 20070109
  Receipt Date: 20070105
  Transmission Date: 20070707
  Serious: Yes (Death, Hospitalization)
  Sender: FDA-Public Use
  Company Number: BR-SHR-BR-2007-000309

PATIENT
  Sex: Male

DRUGS (3)
  1. BETASERON [Suspect]
     Indication: MULTIPLE SCLEROSIS
     Dosage: UNK MIU, UNK
     Route: 058
     Dates: start: 20060101, end: 20060501
  2. AVONEX [Suspect]
     Indication: MULTIPLE SCLEROSIS
     Dosage: UNK MIU, UNK
     Route: 030
     Dates: start: 20060501
  3. REBIF [Suspect]
     Indication: MULTIPLE SCLEROSIS
     Dosage: UNK MIU, UNK
     Route: 058
     Dates: start: 20060801, end: 20060101

REACTIONS (3)
  - CONDITION AGGRAVATED [None]
  - MULTIPLE SCLEROSIS [None]
  - RENAL FAILURE [None]
